FAERS Safety Report 8610895-3 (Version None)
Quarter: 2012Q3

REPORT INFORMATION
  Report Type: 
  Country: None (occurrence: None)
  Receive Date: 20120802
  Receipt Date: 20120723
  Transmission Date: 20120928
  Serious: Yes (Other)
  Sender: FDA-Public Use
  Company Number: DSA_58715_2012

PATIENT
  Age: 14 Year
  Sex: Male

DRUGS (5)
  1. ESMOLOL HCL [Concomitant]
  2. PROPRANOLOL [Concomitant]
  3. AMIODARONE HYDROCHLORIDE [Suspect]
     Indication: VENTRICULAR TACHYCARDIA
     Dosage: (DF INTRAVENOUS (NOT OTHERWISE SPECIFIED)) ; (DF INTRAVENOUS (NOT OTHERWISE SPECIFIED))
     Route: 042
  4. DILTIAZEM HCL [Suspect]
     Indication: VENTRICULAR TACHYCARDIA
     Dosage: (DF)
  5. MULTAQ [Suspect]
     Indication: VENTRICULAR TACHYCARDIA
     Dosage: (DF)

REACTIONS (5)
  - VOMITING [None]
  - ABDOMINAL DISCOMFORT [None]
  - VENTRICULAR TACHYCARDIA [None]
  - DEVICE MALFUNCTION [None]
  - DRUG INEFFECTIVE [None]
